FAERS Safety Report 18384928 (Version 4)
Quarter: 2021Q1

REPORT INFORMATION
  Report Type: Report from Study
  Country: None (occurrence: TR)
  Receive Date: 20201015
  Receipt Date: 20210112
  Transmission Date: 20210419
  Serious: Yes (Other)
  Sender: FDA-Public Use
  Company Number: TR-ABBVIE-20K-161-3606034-00

PATIENT
  Age: 53 Year
  Sex: Male

DRUGS (3)
  1. DUODOPA [Suspect]
     Active Substance: CARBIDOPA\LEVODOPA
     Dosage: MORNING DOSE (ML): 4.30 CONTINUOUS DOSE (ML): 2.20 EXTRA DOSE (ML): 1.50
     Route: 050
     Dates: start: 20201024, end: 20210104
  2. DUODOPA [Suspect]
     Active Substance: CARBIDOPA\LEVODOPA
     Indication: PARKINSON^S DISEASE
     Dosage: MORNING DOSE (ML): 4.30 CONTINUOUS DOSE (ML): 2.40 EXTRA DOSE (ML): 1.50
     Route: 050
     Dates: start: 20151020, end: 20201024
  3. DUODOPA [Suspect]
     Active Substance: CARBIDOPA\LEVODOPA
     Dosage: MORNING DOSE (ML): 3.00 CONTINUOUS DOSE (ML): 2.70 EXTRA DOSE (ML): 1.50
     Route: 050
     Dates: start: 20210104

REACTIONS (3)
  - Fall [Recovered/Resolved]
  - Spinal fracture [Recovered/Resolved]
  - Pain in extremity [Not Recovered/Not Resolved]

NARRATIVE: CASE EVENT DATE: 202010
